FAERS Safety Report 9548716 (Version 1)
Quarter: 2013Q2

REPORT INFORMATION
  Report Type: Spontaneous
  Country: US (occurrence: None)
  Receive Date: 20130607
  Receipt Date: 20130607
  Transmission Date: 20140414
  Serious: Yes (Disabling)
  Sender: FDA-Public Use
  Company Number: SP06347

PATIENT
  Age: 29 Year
  Sex: Female
  Weight: 76.66 kg

DRUGS (5)
  1. XIFAXAN [Suspect]
     Indication: OVERGROWTH BACTERIAL
     Dosage: 1100 MG (550 MG, 2 IN 1 D), ORAL
     Route: 048
     Dates: start: 20130113, end: 20130115
  2. INSULIN NOVALOG [Concomitant]
  3. METFORMIN [Concomitant]
  4. HCTZ [Concomitant]
  5. ZITHROMAX [Concomitant]

REACTIONS (2)
  - Migraine [None]
  - Condition aggravated [None]
